FAERS Safety Report 23342383 (Version 1)
Quarter: 2023Q4

REPORT INFORMATION
  Report Type: Spontaneous
  Country: IQ (occurrence: None)
  Receive Date: 20231227
  Receipt Date: 20231227
  Transmission Date: 20240109
  Serious: Yes (Death)
  Sender: FDA-Public Use
  Company Number: IQ-ROCHE-3481716

PATIENT
  Age: 44 Year
  Sex: Male
  Weight: 80 kg

DRUGS (1)
  1. HEMLIBRA [Suspect]
     Active Substance: EMICIZUMAB-KXWH
     Indication: Factor VIII deficiency
     Route: 058
     Dates: start: 202104, end: 202312

REACTIONS (1)
  - Intra-abdominal haematoma [Fatal]

NARRATIVE: CASE EVENT DATE: 20231214
